FAERS Safety Report 9714728 (Version 3)
Quarter: 2013Q4

REPORT INFORMATION
  Report Type: Spontaneous
  Country: DE (occurrence: None)
  Receive Date: 20131125
  Receipt Date: 20131204
  Transmission Date: 20140711
  Serious: Yes (Hospitalization)
  Sender: FDA-Public Use
  Company Number: SYM-2013-13058

PATIENT
  Age: 65 Year
  Sex: Male

DRUGS (13)
  1. 5-FU [Suspect]
     Indication: COLORECTAL CANCER METASTATIC
     Dosage: 850 MG, EVERY OTHER WEEK, INTRAVENOUS BOLUS
     Route: 040
     Dates: start: 20130911, end: 20130911
  2. AFLIBERCEPT [Suspect]
     Indication: COLORECTAL CANCER METASTATIC
     Dosage: 375 MG, EVERY OTHER WEEK, INTRAVENOUS DRIP
     Route: 041
     Dates: start: 20130911, end: 20130911
  3. IRINOTECAN [Suspect]
     Indication: COLORECTAL CANCER METASTATIC
     Dosage: 360 MG, EVERY OTHER WEEK, INTRAVENOUS DRIP
     Route: 041
     Dates: start: 20130911, end: 20130911
  4. LEUCOVORIN (FOLINIC ACID) (SOLUTION FOR INFUSION) (FOLINIC ACID) [Suspect]
     Indication: COLORECTAL CANCER METASTATIC
     Dosage: 850 MG, EVERY OTHER WEEK, INTRAVENOUS DRIP
     Route: 041
     Dates: start: 20130911, end: 20130911
  5. ACE INHIBITOR NOS (ACE INHIBITORS) [Concomitant]
  6. BETA BLOCKING AGENTS (BETA BLOCKING AGENTS) [Concomitant]
  7. CHOLESTEROL AND TRIGLYCERIDE REDUCERS (ALL OTHER THERAPEUTIC PRODUCTS) [Concomitant]
  8. ANTISEPTICS AND DISINFECTANTS (ANTISEPTICS AND DISINFECTANTS) [Concomitant]
  9. CALCIUM CHANNEL BLOCKERS (CALCIUM CHANNEL BLOCKERS) [Concomitant]
  10. PREGABALIN (PREGABALIN) (PREGABALIN) [Concomitant]
  11. SEROTONIN ANTAGONISTS (SEROTONIN ANTAGONISTS) [Concomitant]
  12. CORTICOSTEROIDS (CORTICOSTEROIDS) [Concomitant]
  13. BELLADONNA ALKALOIDS (ATROPA BELLADONNA EXTRACT) (ATROPA BELLADONNA EXTRACT) [Concomitant]

REACTIONS (3)
  - Neutropenia [None]
  - Leukopenia [None]
  - Neuropathy peripheral [None]
